FAERS Safety Report 20665080 (Version 1)
Quarter: 2022Q1

REPORT INFORMATION
  Report Type: Spontaneous
  Country: US (occurrence: None)
  Receive Date: 20220331
  Receipt Date: 20220331
  Transmission Date: 20220423
  Serious: Yes (Other)
  Sender: FDA-Public Use
  Company Number: None

PATIENT
  Age: 22 Year
  Sex: Female
  Weight: 83.25 kg

DRUGS (8)
  1. BORIC ACID [Suspect]
     Active Substance: BORIC ACID
     Indication: Antifungal prophylaxis
     Dosage: OTHER FREQUENCY : ONCE A WEEK;?
     Route: 067
     Dates: start: 20220320, end: 20220327
  2. NOVOLOG [Concomitant]
     Active Substance: INSULIN ASPART
  3. NEXPLANON [Concomitant]
     Active Substance: ETONOGESTREL
  4. TANDEM INSULIN PUMP [Concomitant]
  5. DEXCOM [Concomitant]
  6. FLUCONAZOLE [Concomitant]
     Active Substance: FLUCONAZOLE
  7. WOMENS HEALTH MULTIVITAMIN [Concomitant]
  8. EDOLAC [Concomitant]

REACTIONS (2)
  - Vaginal haemorrhage [None]
  - Muscle spasms [None]

NARRATIVE: CASE EVENT DATE: 20220320
